FAERS Safety Report 14066535 (Version 2)
Quarter: 2017Q4

REPORT INFORMATION
  Report Type: Report from Study
  Country: CO (occurrence: CO)
  Receive Date: 20171009
  Receipt Date: 20171114
  Transmission Date: 20180321
  Serious: Yes (Hospitalization)
  Sender: FDA-Public Use
  Company Number: PHHY2017CO146798

PATIENT
  Age: 35 Year
  Sex: Male
  Weight: 50 kg

DRUGS (1)
  1. VOTRIENT [Suspect]
     Active Substance: PAZOPANIB HYDROCHLORIDE
     Indication: RENAL CELL CARCINOMA
     Dosage: 400 MG, BID
     Route: 048
     Dates: start: 20170817

REACTIONS (4)
  - Gastrointestinal injury [Unknown]
  - Abdominal mass [Unknown]
  - Urinary tract infection [Unknown]
  - Abdominal pain [Unknown]

NARRATIVE: CASE EVENT DATE: 201708
